FAERS Safety Report 19752498 (Version 2)
Quarter: 2021Q3

REPORT INFORMATION
  Report Type: Report from Study
  Country: CA (occurrence: CA)
  Receive Date: 20210827
  Receipt Date: 20210830
  Transmission Date: 20211014
  Serious: Yes (Other)
  Sender: FDA-Public Use
  Company Number: CA-BEH-2021135235

PATIENT
  Age: 76 Year
  Sex: Female
  Weight: 40 kg

DRUGS (1)
  1. HIZENTRA [Suspect]
     Active Substance: HUMAN IMMUNOGLOBULIN G
     Indication: PRIMARY IMMUNODEFICIENCY SYNDROME
     Dosage: 6 GRAM, QW
     Route: 058
     Dates: start: 20201206

REACTIONS (4)
  - Erythema [Recovering/Resolving]
  - Oedema peripheral [Recovering/Resolving]
  - Post thrombotic syndrome [Recovering/Resolving]
  - Pain in extremity [Recovering/Resolving]
